FAERS Safety Report 10927542 (Version 3)
Quarter: 2015Q2

REPORT INFORMATION
  Report Type: Spontaneous
  Country: US (occurrence: US)
  Receive Date: 20150318
  Receipt Date: 20150403
  Transmission Date: 20150821
  Serious: Yes (Hospitalization)
  Sender: FDA-Public Use
  Company Number: US-BAXTER-2015BAX013470

PATIENT
  Age: 15 Year
  Sex: Male

DRUGS (1)
  1. FEIBA NF [Suspect]
     Active Substance: ANTI-INHIBITOR COAGULANT COMPLEX
     Indication: HAEMOPHILIA B WITH ANTI FACTOR IX
     Route: 042
     Dates: end: 20150309

REACTIONS (3)
  - Treatment noncompliance [Unknown]
  - Hyperhidrosis [Recovered/Resolved]
  - Dyspnoea [Recovered/Resolved]

NARRATIVE: CASE EVENT DATE: 20150309
